FAERS Safety Report 4505855-8 (Version None)
Quarter: 2004Q4

REPORT INFORMATION
  Report Type: 
  Country: None (occurrence: None)
  Receive Date: 20041025
  Receipt Date: 20040503
  Transmission Date: 20050328
  Serious: Yes (Other)
  Sender: FDA-Public Use
  Company Number: US-JNJFOC-20040303428

PATIENT
  Age: 28 Year
  Sex: Female
  Weight: 55.7924 kg

DRUGS (5)
  1. REMICADE [Suspect]
     Indication: CROHN'S DISEASE
     Dosage: 250 ML, 1 IN 1 HOUR, INTRAVENOUS (SEE IMAGE)
     Route: 042
     Dates: start: 20010311, end: 20040311
  2. REMICADE [Suspect]
     Indication: CROHN'S DISEASE
     Dosage: 250 ML, 1 IN 1 HOUR, INTRAVENOUS (SEE IMAGE)
     Route: 042
     Dates: start: 20040226
  3. TYLENOL [Concomitant]
  4. ENTOCORT (BUDESONIDE) [Concomitant]
  5. ESTROSTEP (ANOVLAR) [Concomitant]

REACTIONS (1)
  - INFUSION RELATED REACTION [None]
